FAERS Safety Report 14700313 (Version 1)
Quarter: 2018Q1

REPORT INFORMATION
  Report Type: Spontaneous
  Country: AU (occurrence: AU)
  Receive Date: 20180330
  Receipt Date: 20180330
  Transmission Date: 20180509
  Serious: Yes (Other)
  Sender: FDA-Public Use
  Company Number: AU-IMPAX LABORATORIES, INC-2018-IPXL-00983

PATIENT
  Age: 27 Year
  Sex: Female

DRUGS (4)
  1. CARVEDILOL. [Concomitant]
     Active Substance: CARVEDILOL
     Indication: PERIPARTUM CARDIOMYOPATHY
     Dosage: UNK
     Route: 065
  2. PERINDOPRIL [Concomitant]
     Active Substance: PERINDOPRIL
     Indication: PERIPARTUM CARDIOMYOPATHY
     Dosage: UNK
     Route: 065
  3. DESMOPRESSIN ACETATE IR [Suspect]
     Active Substance: DESMOPRESSIN ACETATE
     Indication: PERIPARTUM CARDIOMYOPATHY
     Dosage: 1 ?G, 2 /DAY
     Route: 058
  4. DESMOPRESSIN ACETATE IR [Suspect]
     Active Substance: DESMOPRESSIN ACETATE
     Dosage: 200 ?G, 2 /DAY
     Route: 048

REACTIONS (8)
  - Caesarean section [Unknown]
  - Exposure during pregnancy [Unknown]
  - Cerebral thrombosis [Recovered/Resolved]
  - Breech presentation [Unknown]
  - Embolism arterial [Recovered/Resolved]
  - Intracardiac thrombus [Recovered/Resolved]
  - Hypercoagulation [Recovered/Resolved]
  - Pulmonary oedema [Unknown]
